FAERS Safety Report 16740645 (Version 1)
Quarter: 2019Q4

REPORT INFORMATION
  Report Type: Spontaneous
  Country: IT (occurrence: IT)
  Receive Date: 20190824
  Receipt Date: 20190824
  Transmission Date: 20200122
  Serious: Yes (Other)
  Sender: FDA-Public Use
  Company Number: None

PATIENT
  Age: 66 Year
  Sex: Female
  Weight: 63 kg

DRUGS (2)
  1. TAGRISSO [Suspect]
     Active Substance: OSIMERTINIB
     Indication: NON-SMALL CELL LUNG CANCER
     Route: 048
     Dates: start: 20190801, end: 20190825
  2. TAGRISSO [Concomitant]
     Active Substance: OSIMERTINIB
     Dates: start: 20190801, end: 20190824

REACTIONS (1)
  - Cognitive disorder [None]

NARRATIVE: CASE EVENT DATE: 20190823
